FAERS Safety Report 22245139 (Version 2)
Quarter: 2023Q2

REPORT INFORMATION
  Report Type: Report from Study
  Country: US (occurrence: US)
  Receive Date: 20230424
  Receipt Date: 20230604
  Transmission Date: 20230721
  Serious: Yes (Hospitalization, Other)
  Sender: FDA-Public Use
  Company Number: US-ABBVIE-4737328

PATIENT
  Age: 75 Year
  Sex: Male
  Weight: 76 kg

DRUGS (3)
  1. HUMIRA [Suspect]
     Active Substance: ADALIMUMAB
     Indication: Crohn^s disease
     Dosage: START DATE TEXT: 2 OR 3 YEARS
     Route: 058
  2. PANTOPRAZOLE [Concomitant]
     Active Substance: PANTOPRAZOLE
     Indication: Product used for unknown indication
     Dates: start: 20230307
  3. SUCRALFATE [Concomitant]
     Active Substance: SUCRALFATE
     Indication: Product used for unknown indication
     Dates: start: 20230307

REACTIONS (9)
  - Gastric perforation [Recovering/Resolving]
  - Fall [Recovered/Resolved]
  - Hospitalisation [Recovering/Resolving]
  - Headache [Recovered/Resolved]
  - Haematochezia [Recovered/Resolved]
  - Hypophagia [Recovered/Resolved]
  - Asthenia [Recovered/Resolved]
  - Hypertension [Not Recovered/Not Resolved]
  - Diabetes mellitus [Not Recovered/Not Resolved]

NARRATIVE: CASE EVENT DATE: 20230401
